FAERS Safety Report 23112896 (Version 1)
Quarter: 2023Q4

REPORT INFORMATION
  Report Type: Spontaneous
  Country: US (occurrence: US)
  Receive Date: 20231027
  Receipt Date: 20231027
  Transmission Date: 20240110
  Serious: No
  Sender: FDA-Public Use
  Company Number: US-BRISTOL-MYERS SQUIBB COMPANY-2023-152937

PATIENT
  Age: 47 Year
  Sex: Female
  Weight: 90.72 kg

DRUGS (1)
  1. ELIQUIS [Suspect]
     Active Substance: APIXABAN
     Indication: Pulmonary embolism

REACTIONS (4)
  - Sciatica [Unknown]
  - Nausea [Unknown]
  - Alopecia [Unknown]
  - Cough [Unknown]
